FAERS Safety Report 16837763 (Version 1)
Quarter: 2019Q3

REPORT INFORMATION
  Report Type: Spontaneous
  Country: US (occurrence: US)
  Receive Date: 20190731
  Receipt Date: 20190731
  Transmission Date: 20191005
  Serious: No
  Sender: FDA-Public Use
  Company Number: None

PATIENT

DRUGS (4)
  1. VAZCULEP [Suspect]
     Active Substance: PHENYLEPHRINE HYDROCHLORIDE
     Route: 042
  2. ONDANSETRON [Suspect]
     Active Substance: ONDANSETRON
  3. ATROPINE. [Suspect]
     Active Substance: ATROPINE
  4. KETOROLAC [Suspect]
     Active Substance: KETOROLAC TROMETHAMINE
     Route: 042

REACTIONS (2)
  - Product use complaint [None]
  - Product label confusion [None]
